FAERS Safety Report 8216545-2 (Version None)
Quarter: 2012Q1

REPORT INFORMATION
  Report Type: 
  Country: None (occurrence: None)
  Receive Date: 20120316
  Receipt Date: 20120312
  Transmission Date: 20120608
  Serious: Yes (Hospitalization)
  Sender: FDA-Public Use
  Company Number: US-B.I. PHARMACEUTICALS,INC./RIDGEFIELD-2012-BP-04713BP

PATIENT
  Sex: Male

DRUGS (2)
  1. VERAPAMIL [Concomitant]
  2. PRADAXA [Suspect]
     Dosage: 300 MG
     Route: 048
     Dates: start: 20120127

REACTIONS (1)
  - TRANSIENT ISCHAEMIC ATTACK [None]
